FAERS Safety Report 24362070 (Version 1)
Quarter: 2024Q3

REPORT INFORMATION
  Report Type: Spontaneous
  Country: TW (occurrence: TW)
  Receive Date: 20240925
  Receipt Date: 20240925
  Transmission Date: 20241016
  Serious: Yes (Other)
  Sender: NOVARTIS
  Company Number: TW-002147023-NVSC2024TW188248

PATIENT
  Age: 40 Year
  Sex: Male

DRUGS (1)
  1. ZOMETA [Suspect]
     Active Substance: ZOLEDRONIC ACID
     Indication: Plasma cell myeloma
     Dosage: 4 MG, QMO
     Route: 042

REACTIONS (2)
  - Osteonecrosis of jaw [Unknown]
  - Pain in jaw [Unknown]
